FAERS Safety Report 24028295 (Version 1)
Quarter: 2024Q2

REPORT INFORMATION
  Report Type: Spontaneous
  Country: US (occurrence: None)
  Receive Date: 20240627
  Receipt Date: 20240627
  Transmission Date: 20240716
  Serious: No
  Sender: FDA-Public Use
  Company Number: None

PATIENT
  Age: 37 Year
  Sex: Female

DRUGS (1)
  1. AMBRISENTAN [Suspect]
     Active Substance: AMBRISENTAN
     Indication: Pulmonary hypertension
     Dosage: 5MG QD ORAL?
     Route: 048
     Dates: start: 20240418, end: 20240505

REACTIONS (6)
  - Therapy cessation [None]
  - Dyspnoea [None]
  - Angina pectoris [None]
  - Oedema [None]
  - Symptom recurrence [None]
  - Cough [None]

NARRATIVE: CASE EVENT DATE: 20240505
